FAERS Safety Report 4877464-2 (Version None)
Quarter: 2006Q1

REPORT INFORMATION
  Report Type: 
  Country: None (occurrence: None)
  Receive Date: 20060111
  Receipt Date: 20060106
  Transmission Date: 20060701
  Serious: Yes (Death, Hospitalization)
  Sender: FDA-Public Use
  Company Number: FR-JNJFOC-20040503235

PATIENT
  Sex: Female
  Weight: 71 kg

DRUGS (17)
  1. RISPERDAL CONSTA [Suspect]
     Route: 030
  2. RISPERDAL [Concomitant]
     Route: 048
  3. RISPERDAL [Concomitant]
     Route: 048
  4. DEPAKOTE [Concomitant]
     Route: 048
  5. DEPAKOTE [Concomitant]
     Route: 048
  6. DEPAKOTE [Concomitant]
     Route: 048
  7. PIPORTIL [Concomitant]
     Route: 048
  8. PIPORTIL [Concomitant]
     Route: 048
  9. CHLORPROMAZINE [Concomitant]
  10. OFLOCET [Concomitant]
  11. OFLOCET [Concomitant]
  12. PIORTIL L4 [Concomitant]
     Route: 030
  13. PARKINANE [Concomitant]
  14. SEROPRAM [Concomitant]
  15. XANAX [Concomitant]
  16. AKINETON [Concomitant]
  17. ZOLPIDEM TARTRATE [Concomitant]

REACTIONS (3)
  - DEATH [None]
  - DEPRESSION [None]
  - PSYCHOTIC DISORDER [None]
